FAERS Safety Report 21590918 (Version 3)
Quarter: 2022Q4

REPORT INFORMATION
  Report Type: Spontaneous
  Country: AU (occurrence: AU)
  Receive Date: 20221114
  Receipt Date: 20221122
  Transmission Date: 20230113
  Serious: Yes (Other)
  Sender: FDA-Public Use
  Company Number: AU-GE HEALTHCARE-2022CSU008133

PATIENT
  Age: 20 Year
  Sex: Female
  Weight: 58 kg

DRUGS (2)
  1. OMNIPAQUE [Suspect]
     Active Substance: IOHEXOL
     Indication: Computerised tomogram abdomen
     Dosage: 70 ML, SINGLE
     Route: 042
     Dates: start: 20221107, end: 20221107
  2. OMNIPAQUE [Suspect]
     Active Substance: IOHEXOL
     Indication: Appendicitis

REACTIONS (3)
  - Sneezing [Recovered/Resolved]
  - Cough [Recovered/Resolved]
  - Pruritus [Recovered/Resolved]

NARRATIVE: CASE EVENT DATE: 20221107
